FAERS Safety Report 6277422-X (Version None)
Quarter: 2009Q3

REPORT INFORMATION
  Report Type: 
  Country: None (occurrence: None)
  Receive Date: 20090722
  Receipt Date: 20090522
  Transmission Date: 20100115
  Serious: No
  Sender: FDA-Public Use
  Company Number: US-BRISTOL-MYERS SQUIBB COMPANY-14635742

PATIENT
  Age: 81 Year
  Sex: Male
  Weight: 93 kg

DRUGS (5)
  1. COUMADIN [Suspect]
     Indication: MYOCARDIAL INFARCTION
     Dosage: 1DF = 5MG 2/WK ALTERNATING WITH 2.5MG FIVE TIMES A WEEK
  2. LIPITOR [Concomitant]
  3. ENALAPRIL MALEATE [Concomitant]
  4. TIMOLOL MALEATE [Concomitant]
  5. SULAR [Concomitant]

REACTIONS (1)
  - INTERNATIONAL NORMALISED RATIO DECREASED [None]
